FAERS Safety Report 20987053 (Version 3)
Quarter: 2022Q3

REPORT INFORMATION
  Report Type: Report from Study
  Country: US (occurrence: US)
  Receive Date: 20220621
  Receipt Date: 20220718
  Transmission Date: 20221027
  Serious: Yes (Death, Hospitalization, Other)
  Sender: FDA-Public Use
  Company Number: US-PFIZER INC-PV202200005865

PATIENT
  Age: 20 Year
  Sex: Female

DRUGS (2)
  1. SILDENAFIL CITRATE [Suspect]
     Active Substance: SILDENAFIL CITRATE
     Dosage: 20 MG
  2. AMBRISENTAN [Suspect]
     Active Substance: AMBRISENTAN
     Dosage: 10 MG, 1X/DAY
     Dates: start: 20160419

REACTIONS (4)
  - Death [Fatal]
  - Diarrhoea [Recovered/Resolved]
  - Hypokalaemia [Unknown]
  - Dehydration [Unknown]

NARRATIVE: CASE EVENT DATE: 20211201
